FAERS Safety Report 7913885-9 (Version None)
Quarter: 2011Q4

REPORT INFORMATION
  Report Type: 
  Country: None (occurrence: None)
  Receive Date: 20111115
  Receipt Date: 20111114
  Transmission Date: 20120403
  Serious: Yes (Hospitalization)
  Sender: FDA-Public Use
  Company Number: JP-PFIZER INC-2011265063

PATIENT
  Sex: Female

DRUGS (2)
  1. CABERGOLINE [Suspect]
     Indication: INFERTILITY
     Dosage: 0.25 MG DAILY
     Route: 048
     Dates: start: 20111026, end: 20111026
  2. CABERGOLINE [Suspect]
     Indication: HYPERPROLACTINAEMIA

REACTIONS (1)
  - HYPERTENSION [None]
